FAERS Safety Report 16180991 (Version 2)
Quarter: 2019Q2

REPORT INFORMATION
  Report Type: Spontaneous
  Country: CH (occurrence: CH)
  Receive Date: 20190410
  Receipt Date: 20190410
  Transmission Date: 20190711
  Serious: Yes (Other)
  Sender: FDA-Public Use
  Company Number: PHHY2019CH072581

PATIENT
  Age: 68 Year
  Sex: Female

DRUGS (4)
  1. PREDNISOLONE. [Suspect]
     Active Substance: PREDNISOLONE
     Indication: MULTIPLE SCLEROSIS
  2. SECUKINUMAB. [Suspect]
     Active Substance: SECUKINUMAB
     Indication: PSORIASIS
  3. SECUKINUMAB. [Suspect]
     Active Substance: SECUKINUMAB
     Indication: RELAPSING-REMITTING MULTIPLE SCLEROSIS
     Route: 065
  4. PREDNISOLONE. [Suspect]
     Active Substance: PREDNISOLONE
     Indication: POLYMYALGIA RHEUMATICA
     Dosage: 2.5 MG TO 40 MG, QD
     Route: 065
     Dates: start: 201607

REACTIONS (4)
  - Multiple sclerosis relapse [Unknown]
  - Fractured sacrum [Unknown]
  - Product use in unapproved indication [Unknown]
  - Infection [Unknown]

NARRATIVE: CASE EVENT DATE: 201608
